FAERS Safety Report 12498818 (Version 3)
Quarter: 2016Q3

REPORT INFORMATION
  Report Type: Spontaneous
  Country: IL (occurrence: IL)
  Receive Date: 20160627
  Receipt Date: 20160807
  Transmission Date: 20161109
  Serious: Yes (Other)
  Sender: FDA-Public Use
  Company Number: IL-BRISTOL-MYERS SQUIBB COMPANY-BMS-2016-049888

PATIENT
  Age: 82 Year
  Sex: Male

DRUGS (10)
  1. SPRYCEL [Suspect]
     Active Substance: DASATINIB
     Indication: CHRONIC MYELOID LEUKAEMIA
     Dosage: 70 MG, QD
     Route: 048
     Dates: start: 2011
  2. SPRYCEL [Suspect]
     Active Substance: DASATINIB
     Dosage: 50 MG, QD
     Route: 048
     Dates: start: 201303
  3. VITAMIN D                          /00107901/ [Concomitant]
     Active Substance: ERGOCALCIFEROL
     Indication: PRODUCT USED FOR UNKNOWN INDICATION
     Route: 065
  4. VITAMIN B12 [Concomitant]
     Active Substance: CYANOCOBALAMIN
     Indication: PRODUCT USED FOR UNKNOWN INDICATION
     Route: 065
  5. SEROXAT [Concomitant]
     Active Substance: PAROXETINE HYDROCHLORIDE
     Indication: PRODUCT USED FOR UNKNOWN INDICATION
     Route: 065
  6. PLAVIX [Concomitant]
     Active Substance: CLOPIDOGREL BISULFATE
     Indication: PRODUCT USED FOR UNKNOWN INDICATION
     Route: 065
  7. SPRYCEL [Suspect]
     Active Substance: DASATINIB
     Dosage: 50 MG, QD
     Route: 048
     Dates: start: 20150517
  8. SPRYCEL [Suspect]
     Active Substance: DASATINIB
     Dosage: 70 MG, QD
     Route: 048
     Dates: start: 201310
  9. TRAMADEX [Concomitant]
     Active Substance: TRAMADOL
     Indication: PRODUCT USED FOR UNKNOWN INDICATION
     Route: 065
  10. LERCAPRESS [Concomitant]
     Active Substance: ENALAPRIL MALEATE\LERCANIDIPINE HYDROCHLORIDE
     Indication: PRODUCT USED FOR UNKNOWN INDICATION
     Route: 065

REACTIONS (6)
  - Hypertension [Unknown]
  - Pain [Unknown]
  - Aspiration pleural cavity [Unknown]
  - Pulmonary hypertension [Unknown]
  - Pleural effusion [Unknown]
  - Pulmonary fibrosis [Unknown]

NARRATIVE: CASE EVENT DATE: 201301
